FAERS Safety Report 4762938-5 (Version None)
Quarter: 2005Q3

REPORT INFORMATION
  Report Type: 
  Country: None (occurrence: None)
  Receive Date: 20050907
  Receipt Date: 20050823
  Transmission Date: 20060218
  Serious: Yes (Other)
  Sender: FDA-Public Use
  Company Number: GBWYE926123AUG05

PATIENT
  Age: 44 Year
  Sex: Female

DRUGS (5)
  1. ENBREL [Suspect]
     Indication: DRUG USE FOR UNKNOWN INDICATION
  2. ENBREL [Suspect]
  3. METHOTREXATE [Concomitant]
     Dosage: UNKNOWN
  4. UNSPECIFIED ANTI-INFLAMMATORY AGENT [Concomitant]
     Dosage: AS REQUIRED
  5. UNSPECIFIED ANABOLIC STEROID [Concomitant]
     Dosage: AS REQUIRED

REACTIONS (7)
  - ANORGASMIA [None]
  - HYPERHIDROSIS [None]
  - HYPOAESTHESIA [None]
  - LACRIMATION DECREASED [None]
  - LOSS OF LIBIDO [None]
  - VAGINAL SWELLING [None]
  - VULVOVAGINAL DRYNESS [None]
